FAERS Safety Report 8468465-6 (Version None)
Quarter: 2012Q2

REPORT INFORMATION
  Report Type: 
  Country: None (occurrence: None)
  Receive Date: 20120626
  Receipt Date: 20120615
  Transmission Date: 20120825
  Serious: Yes (Hospitalization)
  Sender: FDA-Public Use
  Company Number: AU-ROCHE-1010061

PATIENT
  Sex: Male
  Weight: 84 kg

DRUGS (11)
  1. TACROLIMUS [Concomitant]
     Dates: start: 20110913
  2. MABTHERA [Suspect]
     Route: 042
     Dates: start: 20110720, end: 20111001
  3. ACTONEL [Concomitant]
  4. VALACICLOVIR [Concomitant]
     Dates: start: 20060301
  5. PERINDOPRIL ERBUMINE [Concomitant]
     Dates: start: 20020101
  6. MABTHERA [Suspect]
     Indication: CHRONIC GRAFT VERSUS HOST DISEASE
     Route: 042
     Dates: start: 20110408
  7. MABTHERA [Suspect]
     Route: 042
     Dates: start: 20111201
  8. FLUCONAZOLE [Concomitant]
     Dates: start: 20060101
  9. BACTRIM DS [Concomitant]
     Dosage: 1 TABLET
     Dates: start: 20060101
  10. RABEPRAZOLE SODIUM [Concomitant]
     Dates: start: 20060301
  11. ASPIRIN [Concomitant]
     Dates: start: 20020101

REACTIONS (1)
  - SQUAMOUS CELL CARCINOMA [None]
